FAERS Safety Report 10197730 (Version 3)
Quarter: 2014Q2

REPORT INFORMATION
  Report Type: Spontaneous
  Country: US (occurrence: US)
  Receive Date: 20140527
  Receipt Date: 20140606
  Transmission Date: 20141212
  Serious: No
  Sender: FDA-Public Use
  Company Number: US-PFIZER INC-2014139571

PATIENT
  Age: 91 Year
  Sex: Male

DRUGS (9)
  1. SUTENT [Suspect]
     Indication: RENAL CANCER
     Dosage: 25 MG, UNK
     Dates: start: 20140516
  2. DOXAZOSIN MESYLATE [Concomitant]
     Dosage: UNK
  3. LOSARTAN POTASSIUM W/HYDROCHLOROTHIAZIDE [Concomitant]
     Dosage: UNK
  4. AMLODIPINE BESY-BENAZEPRIL HCL [Concomitant]
     Dosage: UNK
  5. ZETIA [Concomitant]
  6. OMEGA 3 [Concomitant]
  7. NITROSTAT [Concomitant]
  8. LOVAZA [Concomitant]
  9. LOVASTATIN [Concomitant]

REACTIONS (2)
  - Fatigue [Unknown]
  - Hepatic enzyme increased [Unknown]
